FAERS Safety Report 18165884 (Version 1)
Quarter: 2020Q3

REPORT INFORMATION
  Report Type: Report from Study
  Country: RU (occurrence: RU)
  Receive Date: 20200819
  Receipt Date: 20200819
  Transmission Date: 20201103
  Serious: Yes (Death)
  Sender: FDA-Public Use
  Company Number: RU-SUN PHARMACEUTICAL INDUSTRIES LTD-2020R1-257375

PATIENT
  Age: 38 Year
  Sex: Male

DRUGS (4)
  1. DECITABINE. [Suspect]
     Active Substance: DECITABINE
     Indication: ACUTE LYMPHOCYTIC LEUKAEMIA
  2. VENETOCLAX. [Suspect]
     Active Substance: VENETOCLAX
     Indication: MINIMAL RESIDUAL DISEASE
     Dosage: 800 MILLIGRAM, DAILY(2?3 CYCLES)
     Route: 065
  3. VENETOCLAX. [Suspect]
     Active Substance: VENETOCLAX
     Indication: ACUTE LYMPHOCYTIC LEUKAEMIA
  4. DECITABINE. [Suspect]
     Active Substance: DECITABINE
     Indication: MINIMAL RESIDUAL DISEASE
     Dosage: 20 MILLIGRAM/SQ. METER(1?5 DAYS)(2?3 CYCLES)
     Route: 065

REACTIONS (1)
  - Transplant failure [Fatal]
